FAERS Safety Report 8674554 (Version 3)
Quarter: 2012Q4

REPORT INFORMATION
  Report Type: 
  Country: US (occurrence: US)
  Receive Date: 20120720
  Receipt Date: 20120828
  Transmission Date: 20130627
  Serious: No
  Sender: FDA-Public Use
  Company Number: US-PFIZER INC-2012170519

PATIENT
  Sex: Male

DRUGS (1)
  1. VIAGRA [Suspect]
     Dosage: UNK

REACTIONS (5)
  - Fall [Unknown]
  - Ligament sprain [Unknown]
  - Oedema peripheral [Unknown]
  - Skin striae [Unknown]
  - Skin wrinkling [Unknown]
